FAERS Safety Report 6642797-6 (Version None)
Quarter: 2010Q1

REPORT INFORMATION
  Report Type: 
  Country: None (occurrence: None)
  Receive Date: 20100319
  Receipt Date: 20100308
  Transmission Date: 20100710
  Serious: Yes (Hospitalization, Other)
  Sender: FDA-Public Use
  Company Number: GB-PFIZER INC-2010012911

PATIENT
  Age: 73 Year
  Sex: Female

DRUGS (8)
  1. LYRICA [Suspect]
     Indication: PAIN
     Dosage: 75 MG, 2X/DAY
     Route: 048
     Dates: start: 20090604, end: 20091101
  2. LYRICA [Suspect]
     Indication: NEURALGIA
  3. DURAGESIC-100 [Concomitant]
     Dosage: 25, EVERY 72 HOURS
     Route: 062
  4. DURAGESIC-100 [Concomitant]
     Dosage: 50, EVERY 72 HOURS
     Route: 062
  5. LOSARTAN [Concomitant]
     Dosage: 100 MG, 1X/DAY
     Route: 048
  6. ESOMEPRAZOLE [Concomitant]
     Dosage: 20 MG, 1X/DAY
     Route: 048
     Dates: start: 20091001, end: 20100201
  7. BENDROFLUAZIDE [Concomitant]
     Dosage: 2.5 MG, 1X/DAY
     Route: 048
     Dates: end: 20091101
  8. BUMETANIDE [Concomitant]
     Dosage: UNK
     Dates: start: 20091101

REACTIONS (8)
  - ANXIETY [None]
  - BRAIN NATRIURETIC PEPTIDE INCREASED [None]
  - CARDIAC FAILURE [None]
  - CARDIOMEGALY [None]
  - DYSPNOEA [None]
  - PAIN [None]
  - PLEURAL EFFUSION [None]
  - TACHYCARDIA [None]
